FAERS Safety Report 5229904-7 (Version None)
Quarter: 2007Q1

REPORT INFORMATION
  Report Type: 
  Country: None (occurrence: None)
  Receive Date: 20070206
  Receipt Date: 20061130
  Transmission Date: 20070707
  Serious: No
  Sender: FDA-Public Use
  Company Number: US-GLAXOSMITHKLINE-A0629701A

PATIENT
  Age: 1 Day
  Sex: Male

DRUGS (2)
  1. PAXIL [Suspect]
     Indication: DRUG USE FOR UNKNOWN INDICATION
     Dosage: 20MG PER DAY
     Dates: start: 20000501
  2. PRENATAL VITAMINS [Concomitant]

REACTIONS (8)
  - CRYING [None]
  - DEVELOPMENTAL DELAY [None]
  - DRUG EXPOSURE DURING PREGNANCY [None]
  - DRUG EXPOSURE VIA BREAST MILK [None]
  - ILL-DEFINED DISORDER [None]
  - MUSCLE RIGIDITY [None]
  - POOR SUCKING REFLEX [None]
  - UMBILICAL HERNIA [None]
